FAERS Safety Report 8250280-X (Version None)
Quarter: 2012Q2

REPORT INFORMATION
  Report Type: 
  Country: None (occurrence: None)
  Receive Date: 20120402
  Receipt Date: 20120321
  Transmission Date: 20120825
  Serious: Yes (Hospitalization)
  Sender: FDA-Public Use
  Company Number: US-BAYER-2010-004336

PATIENT
  Age: 23 Year
  Sex: Female
  Weight: 56.236 kg

DRUGS (8)
  1. M.V.I. [Concomitant]
     Dosage: UNK
     Dates: start: 20100924
  2. YAZ [Suspect]
     Indication: PAIN
  3. YAZ [Suspect]
     Indication: CONTRACEPTION
     Dosage: UNK
     Dates: start: 20070220
  4. CEFUROXIME [Concomitant]
     Dosage: 250 MG, UNK
     Dates: start: 20101019
  5. YAZ [Suspect]
     Indication: DYSMENORRHOEA
  6. LORATADINE [Concomitant]
     Dosage: 10 MG, DAILY
     Route: 048
  7. YAZ [Suspect]
     Indication: MENSTRUAL DISORDER
  8. YAZ [Suspect]
     Indication: HEADACHE

REACTIONS (2)
  - DEEP VEIN THROMBOSIS [None]
  - OEDEMA PERIPHERAL [None]
